FAERS Safety Report 5833457-X (Version None)
Quarter: 2008Q3

REPORT INFORMATION
  Report Type: 
  Country: None (occurrence: None)
  Receive Date: 20080801
  Receipt Date: 20080801
  Transmission Date: 20090109
  Serious: Yes (Other)
  Sender: FDA-Public Use
  Company Number: None

PATIENT
  Sex: Female
  Weight: 117.9352 kg

DRUGS (1)
  1. OXYCODONE HCL AND ACETAMINOPHEN [Suspect]
     Indication: FIBROMYALGIA
     Dosage: 10/650 EVERY 6 HRS PO
     Route: 048
     Dates: start: 19990101

REACTIONS (2)
  - NAUSEA [None]
  - VOMITING [None]
